FAERS Safety Report 5246610-3 (Version None)
Quarter: 2007Q1

REPORT INFORMATION
  Report Type: 
  Country: None (occurrence: None)
  Receive Date: 20070226
  Receipt Date: 20070215
  Transmission Date: 20070707
  Serious: Yes (Other)
  Sender: FDA-Public Use
  Company Number: DE-ROCHE-481481

PATIENT
  Sex: Female

DRUGS (2)
  1. PEGASYS [Suspect]
     Indication: HEPATITIS C
     Dosage: COURSE IN 2005.
     Route: 065
     Dates: start: 20050615, end: 20050615
  2. COPEGUS [Suspect]
     Indication: HEPATITIS C
     Dosage: COURSE IN 2005.
     Route: 065
     Dates: start: 20050615, end: 20050615

REACTIONS (1)
  - MULTIPLE SCLEROSIS [None]
